FAERS Safety Report 13815388 (Version 1)
Quarter: 2017Q3

REPORT INFORMATION
  Report Type: Spontaneous
  Country: US (occurrence: US)
  Receive Date: 20170731
  Receipt Date: 20170731
  Transmission Date: 20171127
  Serious: Yes (Other)
  Sender: FDA-Public Use
  Company Number: None

PATIENT
  Age: 58 Year
  Sex: Female
  Weight: 61.29 kg

DRUGS (7)
  1. EXCEDRIN [Concomitant]
     Active Substance: ACETAMINOPHEN\ASPIRIN\CAFFEINE
  2. ALBUTEROL. [Suspect]
     Active Substance: ALBUTEROL
     Indication: RESPIRATORY DISORDER
     Dosage: 10 PUFF(S) NEBULIZER-MOUTH
     Route: 048
  3. NUQUIL FOR COUGH [Concomitant]
  4. ASTAXANTHIN [Concomitant]
  5. ESTROGEN RING [Concomitant]
     Active Substance: ESTRADIOL
  6. ADVIL [Concomitant]
     Active Substance: IBUPROFEN
  7. PROBIOTIC [Concomitant]
     Active Substance: PROBIOTICS NOS

REACTIONS (4)
  - Dizziness [None]
  - Tremor [None]
  - Ageusia [None]
  - Anosmia [None]

NARRATIVE: CASE EVENT DATE: 20170729
